FAERS Safety Report 17337289 (Version 6)
Quarter: 2020Q2

REPORT INFORMATION
  Report Type: Spontaneous
  Country: US (occurrence: US)
  Receive Date: 20200129
  Receipt Date: 20200421
  Transmission Date: 20200713
  Serious: Yes (Hospitalization, Congenital Anomaly)
  Sender: FDA-Public Use
  Company Number: US-BIOGEN-2020BI00831020

PATIENT
  Age: 0 Day
  Sex: Female

DRUGS (1)
  1. TYSABRI [Suspect]
     Active Substance: NATALIZUMAB
     Indication: MATERNAL EXPOSURE TIMING UNSPECIFIED
     Dosage: INFUSED OVER 1 HOUR
     Route: 064
     Dates: start: 20190228, end: 20190523

REACTIONS (3)
  - Seizure [Unknown]
  - Meningitis [Recovered/Resolved]
  - Foetal exposure during pregnancy [Unknown]

NARRATIVE: CASE EVENT DATE: 20200101
